FAERS Safety Report 4732726-4 (Version None)
Quarter: 2005Q3

REPORT INFORMATION
  Report Type: 
  Country: None (occurrence: None)
  Receive Date: 20050801
  Receipt Date: 20050801
  Transmission Date: 20060218
  Serious: Yes (Hospitalization)
  Sender: FDA-Public Use
  Company Number: None

PATIENT
  Age: 52 Year
  Sex: Male

DRUGS (2)
  1. DEPAKOTE [Suspect]
     Indication: BIPOLAR II DISORDER
     Dosage: 500MG   8AM + 8PM   ORAL
     Route: 048
     Dates: start: 19960301, end: 20050430
  2. DEPAKOTE [Suspect]
     Dosage: 750       2PM    ORAL
     Route: 048

REACTIONS (1)
  - PANCREATITIS [None]
